FAERS Safety Report 7025624-7 (Version None)
Quarter: 2010Q4

REPORT INFORMATION
  Report Type: 
  Country: None (occurrence: None)
  Receive Date: 20101003
  Receipt Date: 20100929
  Transmission Date: 20110411
  Serious: Yes (Hospitalization)
  Sender: FDA-Public Use
  Company Number: CH-BRISTOL-MYERS SQUIBB COMPANY-15312614

PATIENT
  Age: 20 Year
  Sex: Male
  Weight: 56 kg

DRUGS (3)
  1. ABILIFY [Suspect]
     Indication: PSYCHOTIC DISORDER
     Dosage: 10MG:3 TO 4AUG10 15MG:5 TO 6AUG10 30MG:7 TO 19AUG10
     Route: 048
     Dates: start: 20100803, end: 20100101
  2. METOCLOPRAMIDE [Suspect]
     Dates: start: 20100801
  3. TEMESTA [Suspect]
     Indication: PSYCHOTIC DISORDER
     Route: 048
     Dates: start: 20100802

REACTIONS (3)
  - EXTRAPYRAMIDAL DISORDER [None]
  - HICCUPS [None]
  - TENSION HEADACHE [None]
